FAERS Safety Report 5871077-1 (Version None)
Quarter: 2008Q3

REPORT INFORMATION
  Report Type: 
  Country: None (occurrence: None)
  Receive Date: 20080904
  Receipt Date: 20080825
  Transmission Date: 20090109
  Serious: Yes (Other)
  Sender: FDA-Public Use
  Company Number: JP-PFIZER INC-2008071533

PATIENT
  Age: 60 Year
  Sex: Female

DRUGS (6)
  1. HALCION [Suspect]
     Dosage: DAILY DOSE:.25MG
     Route: 048
     Dates: start: 20080804, end: 20080805
  2. MERISLON [Concomitant]
     Route: 048
  3. ADETPHOS [Concomitant]
     Route: 048
  4. CYANOCOBALAMIN [Concomitant]
     Route: 048
  5. DRAMAMINE [Concomitant]
  6. ISOBIDE [Concomitant]
     Route: 048

REACTIONS (2)
  - DEAFNESS TRANSITORY [None]
  - VERTIGO [None]
